FAERS Safety Report 4789660-3 (Version None)
Quarter: 2005Q4

REPORT INFORMATION
  Report Type: 
  Country: None (occurrence: None)
  Receive Date: 20051006
  Receipt Date: 20050923
  Transmission Date: 20060501
  Serious: Yes (Other)
  Sender: FDA-Public Use
  Company Number: 2005SE05419

PATIENT
  Sex: Male

DRUGS (3)
  1. NEXIUM [Suspect]
  2. PNENERGAN [Suspect]
  3. EFFEXOR [Suspect]

REACTIONS (2)
  - AGGRESSION [None]
  - AGITATION [None]
